FAERS Safety Report 10052936 (Version 1)
Quarter: 2014Q1

REPORT INFORMATION
  Report Type: Spontaneous
  Country: IN (occurrence: None)
  Receive Date: 20140331
  Receipt Date: 20140331
  Transmission Date: 20141002
  Serious: Yes (Other)
  Sender: FDA-Public Use
  Company Number: AUR-APL-2014-03909

PATIENT
  Sex: Female

DRUGS (4)
  1. RIBAVIRIN [Suspect]
     Indication: ANTIVIRAL TREATMENT
  2. INTERFERON (INTERFERON) [Suspect]
     Indication: ANTIVIRAL TREATMENT
  3. DOCETAXEL (DOCETAXEL) [Suspect]
     Indication: CHEMOTHERAPY
  4. TRASTUZUMAB [Suspect]
     Indication: CHEMOTHERAPY

REACTIONS (2)
  - Neutropenia [None]
  - Hepatotoxicity [None]
